FAERS Safety Report 7814053-1 (Version None)
Quarter: 2011Q4

REPORT INFORMATION
  Report Type: 
  Country: None (occurrence: None)
  Receive Date: 20111012
  Receipt Date: 20110929
  Transmission Date: 20120403
  Serious: Yes (Disabling)
  Sender: FDA-Public Use
  Company Number: NGX_00623_2011

PATIENT
  Sex: Female

DRUGS (2)
  1. QUTENZA [Suspect]
     Indication: NEURALGIA
     Dosage: (DF [SINGLE DOSE, TREATING HANDS] TOPICAL)
     Route: 061
     Dates: start: 20110919, end: 20110919
  2. POLYPHARMACY UNSPECIFIED [Concomitant]

REACTIONS (3)
  - APPLICATION SITE PAIN [None]
  - SKIN BURNING SENSATION [None]
  - BLOOD PRESSURE FLUCTUATION [None]
